FAERS Safety Report 25233059 (Version 2)
Quarter: 2025Q2

REPORT INFORMATION
  Report Type: Spontaneous
  Country: JP (occurrence: JP)
  Receive Date: 20250424
  Receipt Date: 20250526
  Transmission Date: 20250716
  Serious: Yes (Other)
  Sender: GLAXOSMITHKLINE
  Company Number: JP-GLAXOSMITHKLINE INC-JP2025JPN045724

PATIENT

DRUGS (3)
  1. ATOVAQUONE [Suspect]
     Active Substance: ATOVAQUONE
     Indication: Antifungal prophylaxis
     Dosage: 1500 MG, QD
  2. RITUXIMAB [Concomitant]
     Active Substance: RITUXIMAB
  3. PREDNISOLONE [Concomitant]
     Active Substance: PREDNISOLONE
     Dosage: 30 MG, QD

REACTIONS (9)
  - Pneumocystis jirovecii pneumonia [Unknown]
  - Hypoxia [Unknown]
  - Pneumonia bacterial [Unknown]
  - Cardiac failure [Unknown]
  - Pulmonary alveolar haemorrhage [Unknown]
  - Pyrexia [Unknown]
  - Gene mutation [Unknown]
  - Drug resistance [Unknown]
  - Dyspnoea [Unknown]
